FAERS Safety Report 5008689-3 (Version None)
Quarter: 2006Q2

REPORT INFORMATION
  Report Type: 
  Country: None (occurrence: None)
  Receive Date: 20060523
  Receipt Date: 20060220
  Transmission Date: 20061013
  Serious: Yes (Disabling)
  Sender: FDA-Public Use
  Company Number: DE-GLAXOSMITHKLINE-D0048779A

PATIENT
  Age: 80 Year
  Sex: Male
  Weight: 86 kg

DRUGS (10)
  1. AVODART [Suspect]
     Dosage: .5MG SINGLE DOSE
     Route: 048
     Dates: start: 20051023, end: 20060213
  2. SOTALOL HCL [Concomitant]
     Dosage: 80MG TWICE PER DAY
     Route: 065
  3. DIOVAN [Concomitant]
     Dosage: 40MG PER DAY
     Route: 065
  4. DYTIDE [Concomitant]
     Dosage: .5TAB PER DAY
  5. THIOCTACID [Concomitant]
     Dosage: 600MG THREE TIMES PER WEEK
     Route: 065
  6. TROSPI [Concomitant]
     Dosage: 150MG PER DAY
     Route: 065
  7. PLAVIX [Concomitant]
     Dosage: 75MG PER DAY
     Route: 065
  8. MAGNESIUM SULFATE [Concomitant]
     Dosage: 90MG PER DAY
     Route: 065
  9. PRAVASIN [Concomitant]
     Dosage: 10MG THREE TIMES PER WEEK
     Route: 065
  10. OTHER MEDICATIONS [Concomitant]
     Route: 065

REACTIONS (1)
  - BREAST HYPERPLASIA [None]
